FAERS Safety Report 6328000-5 (Version None)
Quarter: 2009Q3

REPORT INFORMATION
  Report Type: 
  Country: None (occurrence: None)
  Receive Date: 20090825
  Receipt Date: 20081001
  Transmission Date: 20100115
  Serious: No
  Sender: FDA-Public Use
  Company Number: US-ABBOTT-08P-163-0479141-00

PATIENT
  Sex: Female
  Weight: 81.72 kg

DRUGS (2)
  1. SYNTHROID [Suspect]
     Indication: THYROID NEOPLASM
     Route: 048
     Dates: start: 20080801, end: 20080921
  2. SYNTHROID [Suspect]
     Dates: start: 20080928

REACTIONS (3)
  - DRUG DOSE OMISSION [None]
  - NAUSEA [None]
  - VOMITING [None]
